FAERS Safety Report 14694786 (Version 1)
Quarter: 2018Q1

REPORT INFORMATION
  Report Type: Spontaneous
  Country: JP (occurrence: JP)
  Receive Date: 20180329
  Receipt Date: 20180329
  Transmission Date: 20180509
  Serious: Yes (Hospitalization, Other)
  Sender: FDA-Public Use
  Company Number: JP-CMP PHARMA-2018CMP00007

PATIENT
  Age: 75 Year
  Sex: Male

DRUGS (2)
  1. TRIAMCINOLONE [Suspect]
     Active Substance: TRIAMCINOLONE
     Indication: MACULAR OEDEMA
     Dosage: UNK, ONCE
     Route: 031
     Dates: start: 201509
  2. POVIDONE-IODINE. [Concomitant]
     Active Substance: POVIDONE-IODINE
     Dosage: 10% AND 0.625% APPLIED TO LID MARGINS AND CONJUNCTIVAL SAC, RESPECTIVELY
     Route: 061
     Dates: start: 201509

REACTIONS (3)
  - Choroidal detachment [Unknown]
  - Infective scleritis [Recovered/Resolved]
  - Iridocyclitis [Unknown]

NARRATIVE: CASE EVENT DATE: 201511
